FAERS Safety Report 16318289 (Version 2)
Quarter: 2019Q2

REPORT INFORMATION
  Report Type: Spontaneous
  Country: US (occurrence: US)
  Receive Date: 20190516
  Receipt Date: 20190531
  Transmission Date: 20190711
  Serious: No
  Sender: FDA-Public Use
  Company Number: US-ASTRAZENECA-2019SE60074

PATIENT
  Age: 903 Month
  Sex: Female
  Weight: 53.5 kg

DRUGS (5)
  1. GLUNETZA [Concomitant]
  2. COQ10 [Concomitant]
     Active Substance: UBIDECARENONE
  3. PREVACID [Concomitant]
     Active Substance: LANSOPRAZOLE
  4. INVOKANA [Concomitant]
     Active Substance: CANAGLIFLOZIN
  5. BYDUREON [Suspect]
     Active Substance: EXENATIDE
     Indication: TYPE 2 DIABETES MELLITUS
     Route: 058

REACTIONS (11)
  - Cataract [Unknown]
  - Dyspnoea [Unknown]
  - Blood glucose decreased [Unknown]
  - Blood glucose abnormal [Unknown]
  - Feeling abnormal [Unknown]
  - Device issue [Unknown]
  - Injection site mass [Unknown]
  - Dysstasia [Unknown]
  - Weight decreased [Unknown]
  - Product dose omission [Unknown]
  - Diarrhoea [Not Recovered/Not Resolved]

NARRATIVE: CASE EVENT DATE: 201812
